FAERS Safety Report 4636505-8 (Version None)
Quarter: 2005Q2

REPORT INFORMATION
  Report Type: 
  Country: None (occurrence: None)
  Receive Date: 20050415
  Receipt Date: 20050406
  Transmission Date: 20051028
  Serious: Yes (Hospitalization)
  Sender: FDA-Public Use
  Company Number: SE-BRISTOL-MYERS SQUIBB COMPANY-12922704

PATIENT
  Age: 12 Year
  Sex: Female

DRUGS (4)
  1. AZACTAM [Suspect]
     Indication: INCREASED BRONCHIAL SECRETION
     Route: 042
     Dates: start: 20040916, end: 20040916
  2. AZACTAM [Suspect]
     Indication: ASTHENIA
     Route: 042
     Dates: start: 20040916, end: 20040916
  3. NEBCINA [Concomitant]
     Indication: INCREASED BRONCHIAL SECRETION
     Dates: start: 20040915
  4. NEBCINA [Concomitant]
     Indication: ASTHENIA
     Dates: start: 20040915

REACTIONS (5)
  - HEADACHE [None]
  - OEDEMA MOUTH [None]
  - ORAL DISCOMFORT [None]
  - ORAL PAIN [None]
  - PYREXIA [None]
